FAERS Safety Report 22109881 (Version 1)
Quarter: 2023Q1

REPORT INFORMATION
  Report Type: Spontaneous
  Country: US (occurrence: None)
  Receive Date: 20230316
  Receipt Date: 20230316
  Transmission Date: 20230418
  Serious: Yes (Other)
  Sender: FDA-Public Use
  Company Number: None

PATIENT
  Sex: Female

DRUGS (8)
  1. VERZENIO [Suspect]
     Active Substance: ABEMACICLIB
     Indication: Breast cancer female
     Dosage: FREQUENCY : TWICE A DAY;?
     Route: 048
     Dates: start: 20220401
  2. LETROZOLE [Concomitant]
     Active Substance: LETROZOLE
  3. LORAZEPAM TAB 0.5MG [Concomitant]
  4. OMEPRAZOLE [Concomitant]
     Active Substance: OMEPRAZOLE
  5. OMEPRAZOLE [Concomitant]
     Active Substance: OMEPRAZOLE
  6. OMEPRAZOLE TAB 20MG [Concomitant]
  7. PENICILLN VK TAB 250MG [Concomitant]
  8. SERTRALINE TAB 25MG [Concomitant]

REACTIONS (5)
  - Lymphoedema [None]
  - Anxiety [None]
  - Weight decreased [None]
  - Decreased appetite [None]
  - Fatigue [None]
